FAERS Safety Report 21872048 (Version 3)
Quarter: 2023Q2

REPORT INFORMATION
  Report Type: Spontaneous
  Country: US (occurrence: US)
  Receive Date: 20230117
  Receipt Date: 20230424
  Transmission Date: 20230721
  Serious: Yes (Other)
  Sender: FDA-Public Use
  Company Number: US-SA-SAC20230116000439

PATIENT
  Age: 49 Year
  Sex: Female

DRUGS (1)
  1. DUPIXENT [Suspect]
     Active Substance: DUPILUMAB
     Dosage: 300 MG (FREQUENCY: OTHER)
     Route: 058

REACTIONS (5)
  - Immunodeficiency [Unknown]
  - Injection site pain [Recovering/Resolving]
  - Bronchitis [Unknown]
  - Injection site rash [Recovered/Resolved]
  - Thyroid mass [Unknown]

NARRATIVE: CASE EVENT DATE: 20230418
